FAERS Safety Report 4773135-1 (Version None)
Quarter: 2005Q3

REPORT INFORMATION
  Report Type: 
  Country: None (occurrence: None)
  Receive Date: 20050915
  Receipt Date: 20050915
  Transmission Date: 20060218
  Serious: No
  Sender: FDA-Public Use
  Company Number: None

PATIENT
  Age: 61 Year
  Sex: Male
  Weight: 116.5744 kg

DRUGS (2)
  1. PHENYLEPHRINE     1%    -10MG/ML-    AMERICAN REGENT [Suspect]
     Indication: ERECTION INCREASED
     Dosage: 0.5 MG IN DIVIDED DOSES  2X   INTRA CORP   DOSE GIVEN WAS  5MG OVER 2 DOSE
     Route: 011
     Dates: start: 20050810, end: 20050810
  2. PHENYLEPHRINE     1%    -10MG/ML-    AMERICAN REGENT [Suspect]
     Indication: PROSTATIC OPERATION
     Dosage: 0.5 MG IN DIVIDED DOSES  2X   INTRA CORP   DOSE GIVEN WAS  5MG OVER 2 DOSE
     Route: 011
     Dates: start: 20050810, end: 20050810

REACTIONS (5)
  - CHEST PAIN [None]
  - HYPERTENSION [None]
  - INCORRECT DOSE ADMINISTERED [None]
  - OVERDOSE [None]
  - PROCEDURAL COMPLICATION [None]
